FAERS Safety Report 7558393-2 (Version None)
Quarter: 2011Q2

REPORT INFORMATION
  Report Type: 
  Country: None (occurrence: None)
  Receive Date: 20110620
  Receipt Date: 20110607
  Transmission Date: 20111010
  Serious: Yes (Other)
  Sender: FDA-Public Use
  Company Number: PHEH2010US03414

PATIENT
  Sex: Female

DRUGS (7)
  1. FASLODEX [Concomitant]
  2. TYLENOL-500 [Concomitant]
  3. FEMARA [Concomitant]
  4. TAMOXIFEN CITRATE [Concomitant]
  5. HYDROCHLOROTHIAZIDE [Concomitant]
  6. AREDIA [Suspect]
     Dosage: UNK
     Dates: start: 20020710
  7. PRILOSEC [Concomitant]

REACTIONS (17)
  - DECREASED APPETITE [None]
  - DYSPHONIA [None]
  - OSTEONECROSIS OF JAW [None]
  - PAIN [None]
  - SPINAL COLUMN STENOSIS [None]
  - SPINAL CORD COMPRESSION [None]
  - GRANULOMA [None]
  - CEREBRAL ATROPHY [None]
  - ANXIETY [None]
  - SPINAL COMPRESSION FRACTURE [None]
  - HIATUS HERNIA [None]
  - INJURY [None]
  - ANHEDONIA [None]
  - HEPATIC LESION [None]
  - BACK PAIN [None]
  - PLEURAL EFFUSION [None]
  - ARTHRALGIA [None]
